FAERS Safety Report 5806586-4 (Version None)
Quarter: 2008Q3

REPORT INFORMATION
  Report Type: 
  Country: None (occurrence: None)
  Receive Date: 20080710
  Receipt Date: 20080626
  Transmission Date: 20090109
  Serious: Yes (Other)
  Sender: FDA-Public Use
  Company Number: PHEH2007US07935

PATIENT
  Sex: Female
  Weight: 41.723 kg

DRUGS (1)
  1. FEMARA [Suspect]
     Indication: BREAST CANCER
     Dosage: 2.5 MG, QD
     Route: 048
     Dates: start: 20061101

REACTIONS (11)
  - BONE DENSITY DECREASED [None]
  - BONE MARROW OEDEMA [None]
  - BONE PAIN [None]
  - FATIGUE [None]
  - OEDEMA [None]
  - PELVIC FRACTURE [None]
  - RESORPTION BONE INCREASED [None]
  - STRESS FRACTURE [None]
  - SURGERY [None]
  - VULVOVAGINAL DRYNESS [None]
  - WEIGHT DECREASED [None]
